FAERS Safety Report 14138807 (Version 1)
Quarter: 2017Q4

REPORT INFORMATION
  Report Type: Spontaneous
  Country: US (occurrence: US)
  Receive Date: 20171027
  Receipt Date: 20171027
  Transmission Date: 20180321
  Serious: Yes (Other)
  Sender: FDA-Public Use
  Company Number: US-TEVA-795017ACC

PATIENT
  Age: 70 Year
  Sex: Female

DRUGS (7)
  1. LETROZOLE. [Suspect]
     Active Substance: LETROZOLE
     Dosage: 2.5 MILLIGRAM DAILY;
     Route: 065
     Dates: start: 20160422, end: 2016
  2. XGEVA [Concomitant]
     Active Substance: DENOSUMAB
     Indication: PROPHYLAXIS
  3. VITAMIN D3 [Concomitant]
     Active Substance: CHOLECALCIFEROL
  4. XGEVA [Concomitant]
     Active Substance: DENOSUMAB
     Indication: BONE GIANT CELL TUMOUR
  5. CITRACAL [Concomitant]
     Active Substance: CALCIUM CITRATE
     Dosage: 1800 MG DAILY CALCIUM AND 1500 IU VIT D3
  6. LETROZOLE. [Suspect]
     Active Substance: LETROZOLE
     Dosage: 2.5 MILLIGRAM DAILY;
     Dates: start: 201701, end: 201704
  7. IBRANCE [Concomitant]
     Active Substance: PALBOCICLIB
     Dosage: 100 MILLIGRAM DAILY;
     Dates: end: 201704

REACTIONS (8)
  - Alopecia [Not Recovered/Not Resolved]
  - Bone cancer [Unknown]
  - Dizziness [Not Recovered/Not Resolved]
  - Bone pain [Not Recovered/Not Resolved]
  - Hyperhidrosis [Not Recovered/Not Resolved]
  - Hot flush [Not Recovered/Not Resolved]
  - Fatigue [Not Recovered/Not Resolved]
  - Myalgia [Unknown]

NARRATIVE: CASE EVENT DATE: 201610
